FAERS Safety Report 5524142-2 (Version None)
Quarter: 2007Q4

REPORT INFORMATION
  Report Type: 
  Country: None (occurrence: None)
  Receive Date: 20071121
  Receipt Date: 20071113
  Transmission Date: 20080405
  Serious: Yes (Other)
  Sender: FDA-Public Use
  Company Number: GB-PFIZER INC-2007095641

PATIENT
  Age: 51 Year
  Sex: Female

DRUGS (2)
  1. CHAMPIX [Suspect]
  2. FLUOXETINE [Concomitant]
     Dates: start: 20050507

REACTIONS (2)
  - BACK PAIN [None]
  - HAEMATURIA [None]
